FAERS Safety Report 8582537-7 (Version None)
Quarter: 2012Q3

REPORT INFORMATION
  Report Type: 
  Country: None (occurrence: None)
  Receive Date: 20120809
  Receipt Date: 20120730
  Transmission Date: 20120928
  Serious: Yes (Other)
  Sender: FDA-Public Use
  Company Number: IL-ELI_LILLY_AND_COMPANY-IL201208001606

PATIENT
  Sex: Female
  Weight: 42 kg

DRUGS (2)
  1. VITAMINS NOS [Concomitant]
  2. FORTEO [Suspect]
     Indication: OSTEOPOROSIS
     Dosage: 20 UG, UNK
     Route: 058
     Dates: start: 20110101

REACTIONS (2)
  - ABDOMINAL DISTENSION [None]
  - MASS [None]
